FAERS Safety Report 4522490-6 (Version None)
Quarter: 2004Q4

REPORT INFORMATION
  Report Type: 
  Country: None (occurrence: None)
  Receive Date: 20041207
  Receipt Date: 20041122
  Transmission Date: 20050328
  Serious: Yes (Other)
  Sender: FDA-Public Use
  Company Number: US_0411107991

PATIENT
  Age: 76 Year
  Sex: Female

DRUGS (3)
  1. FORTEO [Suspect]
     Indication: OSTEOPOROSIS
     Dates: start: 20030301, end: 20040917
  2. ALLEGRA [Concomitant]
  3. FLU (INFLUENZA VACCINE) [Concomitant]

REACTIONS (4)
  - DYSPNOEA [None]
  - NASOPHARYNGITIS [None]
  - PULMONARY OEDEMA [None]
  - TOTAL LUNG CAPACITY DECREASED [None]
